FAERS Safety Report 8748082 (Version 2)
Quarter: 2012Q4

REPORT INFORMATION
  Report Type: 
  Country: BR (occurrence: BR)
  Receive Date: 20120827
  Receipt Date: 20120831
  Transmission Date: 20130627
  Serious: Yes (Other)
  Sender: FDA-Public Use
  Company Number: BR-PFIZER INC-2012204797

PATIENT
  Age: 78 Year
  Sex: Female
  Weight: 60 kg

DRUGS (14)
  1. XALATAN [Suspect]
     Indication: GLAUCOMA
     Dosage: 1x/day (at night)
     Route: 047
     Dates: start: 2002
  2. BENICAR [Concomitant]
     Indication: TACHYCARDIA
     Dosage: two tablets, daily
     Dates: start: 2011
  3. CALCIUM [Concomitant]
     Indication: BONE DISORDER
     Dosage: 1 tablet, daily
     Dates: start: 201108
  4. VITAMIN D [Concomitant]
     Indication: BONE DISORDER
     Dosage: 1 tablet daily
     Dates: start: 201108
  5. SELOZOK [Concomitant]
     Indication: TACHYCARDIA
     Dosage: 1 tablet, daily
     Dates: start: 201202
  6. CENTRUM SILVER [Concomitant]
     Indication: BONE DISORDER
     Dosage: 1 tablet, daily
     Dates: start: 2010
  7. CILOSTAZOL [Concomitant]
     Indication: SUPPLEMENTATION THERAPY
     Dosage: 1 tablet, daily
     Dates: start: 201108
  8. SERTRALINE HYDROCHLORIDE [Concomitant]
     Indication: RELAXATION THERAPY
     Dosage: 1 tablet daily
     Dates: start: 2011
  9. COMBIGAN [Concomitant]
     Indication: CATARACT
     Dosage: one drop in each eye, unspecified frequency
     Dates: start: 2002
  10. COMBIGAN [Concomitant]
     Indication: GLAUCOMA
  11. ENDOFOLIN [Concomitant]
     Indication: BONE DISORDER
     Dosage: 1 tablet, daily
     Dates: start: 201108
  12. FLORINEF [Concomitant]
     Indication: SYNCOPE
     Dosage: 1 tablet daily
     Dates: start: 2008
  13. INDAPAMIDE [Concomitant]
     Indication: TACHYCARDIA
     Dosage: 1 tablet, daily
     Dates: start: 201108
  14. NEUTROFER [Concomitant]
     Indication: BONE DISORDER
     Dosage: 1 tablet, daily
     Dates: start: 201202

REACTIONS (2)
  - Dementia Alzheimer^s type [Not Recovered/Not Resolved]
  - Glaucoma [Unknown]
